FAERS Safety Report 14567484 (Version 2)
Quarter: 2018Q1

REPORT INFORMATION
  Report Type: Spontaneous
  Country: DE (occurrence: DE)
  Receive Date: 20180223
  Receipt Date: 20180323
  Transmission Date: 20180509
  Serious: Yes (Other)
  Sender: FDA-Public Use
  Company Number: DE-AUROBINDO-AUR-APL-2018-009776

PATIENT
  Sex: Male

DRUGS (15)
  1. CANDESARTAN+HYDROCHLOROTHIAZIDE TABLETS [Suspect]
     Active Substance: CANDESARTAN CILEXETIL\HYDROCHLOROTHIAZIDE
     Indication: PRODUCT USED FOR UNKNOWN INDICATION
     Dosage: UNK UNK, QD (16 MG/12.5 MG, ONE TABLET DAILY AT NIGHT)
     Route: 065
  2. SPIRONOLACTON HEXAL [Suspect]
     Active Substance: SPIRONOLACTONE
     Indication: PRODUCT USED FOR UNKNOWN INDICATION
     Dosage: 50 MG, QD (ONE TABLET DAILY IN THE MORNING)
     Route: 065
  3. SPIRIVA [Suspect]
     Active Substance: TIOTROPIUM BROMIDE MONOHYDRATE
     Dosage: 2.5 ?G ; AS NECESSARY
     Route: 065
  4. MIFLONIDE [Suspect]
     Active Substance: BUDESONIDE
     Indication: PRODUCT USED FOR UNKNOWN INDICATION
     Dosage: UNK
     Route: 065
  5. PANTOPRAZOLE GASTRO-RESISTANT TABLET [Interacting]
     Active Substance: PANTOPRAZOLE SODIUM
     Indication: PRODUCT USED FOR UNKNOWN INDICATION
     Dosage: 40 MG, QD
     Route: 065
  6. MIFLONIDE [Suspect]
     Active Substance: BUDESONIDE
     Indication: PRODUCT USED FOR UNKNOWN INDICATION
     Dosage: 400 ?G, PRN ; AS NECESSARY
     Route: 065
  7. L-THYROXINE                        /00068001/ [Suspect]
     Active Substance: LEVOTHYROXINE
     Indication: PRODUCT USED FOR UNKNOWN INDICATION
     Dosage: 50 UG, QD
     Route: 065
  8. SIMVASTATIN FILM-COATED TABLET [Interacting]
     Active Substance: SIMVASTATIN
     Indication: PRODUCT USED FOR UNKNOWN INDICATION
     Dosage: 20 MG, QD (ONE TABLET DAILY IN THE MORNING)
     Route: 065
  9. ACETYLSALICYLIC ACID TABLET [Suspect]
     Active Substance: ASPIRIN
     Indication: PRODUCT USED FOR UNKNOWN INDICATION
     Dosage: 1 DOSAGE FORM, DAILY
     Route: 065
  10. SPIRIVA [Suspect]
     Active Substance: TIOTROPIUM BROMIDE MONOHYDRATE
     Indication: PRODUCT USED FOR UNKNOWN INDICATION
     Dosage: 2.5 UG, AS NEEDED ; AS NECESSARY
     Route: 065
  11. PANTOPRAZOLE GASTRO-RESISTANT TABLET [Interacting]
     Active Substance: PANTOPRAZOLE SODIUM
     Dosage: 40 MG, BID
     Route: 065
  12. BISOPROLOL FILM-COATED TABLETS [Suspect]
     Active Substance: BISOPROLOL
     Indication: PRODUCT USED FOR UNKNOWN INDICATION
     Dosage: UNK UNK, QD (ONE TABLET DAILY IN THE MORNING)
     Route: 065
  13. GLIMEPIRIDE TABLET [Suspect]
     Active Substance: GLIMEPIRIDE
     Indication: PRODUCT USED FOR UNKNOWN INDICATION
     Dosage: 6 MG, QD (ONE TABLET DAILY IN THE MORNING)
     Route: 065
  14. FORADIL [Interacting]
     Active Substance: FORMOTEROL FUMARATE
     Indication: PRODUCT USED FOR UNKNOWN INDICATION
     Dosage: UNK ()
     Route: 065
  15. FORADIL [Interacting]
     Active Substance: FORMOTEROL FUMARATE
     Dosage: 12 UG, AS NEEDED ; AS NECESSARY
     Route: 065

REACTIONS (2)
  - Drug interaction [Unknown]
  - Blood glucose increased [Unknown]
